FAERS Safety Report 22019588 (Version 2)
Quarter: 2023Q1

REPORT INFORMATION
  Report Type: Spontaneous
  Country: TW (occurrence: TW)
  Receive Date: 20230222
  Receipt Date: 20230223
  Transmission Date: 20230418
  Serious: Yes (Other)
  Sender: FDA-Public Use
  Company Number: TW-drreddys-LIT/TAI/23/0161409

PATIENT
  Age: 66 Year
  Sex: Female

DRUGS (10)
  1. PEMETREXED [Suspect]
     Active Substance: PEMETREXED
     Indication: Lung adenocarcinoma
     Dosage: THIRD-LINE OF TREATMENT
     Route: 042
     Dates: start: 202103
  2. PEMETREXED [Suspect]
     Active Substance: PEMETREXED
     Indication: Immunochemotherapy
  3. XGEVA [Suspect]
     Active Substance: DENOSUMAB
     Indication: Metastases to bone
     Dosage: THIRD-LINE OF TREATMENT
     Dates: start: 202103
  4. XGEVA [Suspect]
     Active Substance: DENOSUMAB
     Indication: Lung adenocarcinoma
  5. ATEZOLIZUMAB [Suspect]
     Active Substance: ATEZOLIZUMAB
     Indication: Immunochemotherapy
     Dosage: THIRD-LINE OF TREATMENT
     Route: 042
     Dates: start: 202103
  6. ATEZOLIZUMAB [Suspect]
     Active Substance: ATEZOLIZUMAB
     Indication: Lung adenocarcinoma
  7. BEVACIZUMAB [Suspect]
     Active Substance: BEVACIZUMAB
     Indication: Immunochemotherapy
     Dosage: THIRD-LINE OF TREATMENT
     Route: 042
     Dates: start: 202103
  8. BEVACIZUMAB [Suspect]
     Active Substance: BEVACIZUMAB
     Indication: Lung adenocarcinoma
  9. CISPLATIN [Suspect]
     Active Substance: CISPLATIN
     Indication: Immunochemotherapy
     Dosage: THIRD-LINE OF TREATMENT
     Route: 042
     Dates: start: 202103
  10. CISPLATIN [Suspect]
     Active Substance: CISPLATIN
     Indication: Lung adenocarcinoma

REACTIONS (2)
  - Metastases to bone [Unknown]
  - Drug ineffective [Unknown]
